FAERS Safety Report 4562635-5 (Version None)
Quarter: 2005Q1

REPORT INFORMATION
  Report Type: 
  Country: None (occurrence: None)
  Receive Date: 20050124
  Receipt Date: 20050111
  Transmission Date: 20050727
  Serious: Yes (Hospitalization)
  Sender: FDA-Public Use
  Company Number: 2005011218

PATIENT
  Age: 38 Year
  Sex: Male

DRUGS (2)
  1. ROGAINE [Suspect]
     Indication: ALOPECIA
     Dosage: UNSPECIFIED ONCE DAILY, TOPICAL
     Route: 061
     Dates: start: 20040901, end: 20050106
  2. LEVOFLOXACIN [Suspect]
     Indication: PNEUMONIA
     Dosage: ORAL
     Route: 048
     Dates: start: 20050103

REACTIONS (3)
  - PAIN [None]
  - PERICARDIAL HAEMORRHAGE [None]
  - PNEUMONIA [None]
